FAERS Safety Report 6720803 (Version 3)
Quarter: 2014Q1

REPORT INFORMATION
  Report Type: Other
  Country: JP (occurrence: JP)
  Receive Date: 20080806
  Receipt Date: 20140116
  Transmission Date: 20141002
  Serious: Yes (Other)
  Sender: FDA-Public Use
  Company Number: JP-BRISTOL-MYERS SQUIBB COMPANY-14287494

PATIENT
  Age: 49 Year
  Sex: Male

DRUGS (12)
  1. CISPLATIN [Suspect]
     Indication: DIFFUSE LARGE B-CELL LYMPHOMA
     Dosage: DAYS 2-5
  2. ETOPOSIDE [Interacting]
     Indication: DIFFUSE LARGE B-CELL LYMPHOMA
     Dosage: DAYS 2- 5
  3. WARFARIN SODIUM [Interacting]
     Indication: THROMBOSIS PROPHYLAXIS
     Dosage: INCREASED TO 8MG/D,REDUCED TO 3MG THEN 6MG/D,INTERRUPTED+RESTARTED,INTERRUPTED+RESTARTED AT 1MG
  4. RITUXIMAB [Interacting]
     Dosage: ON DAY 1
  5. CYTARABINE [Interacting]
     Dosage: 1 DF=2 G/M2 ON DAY 6
  6. METHYLPREDNISOLONE [Interacting]
     Dosage: 500 MG/BODY ON DAYS 1- 6
  7. BUCOLOME [Suspect]
  8. ZONISAMIDE [Concomitant]
  9. NIZATIDINE [Concomitant]
  10. TEPRENONE [Concomitant]
  11. FLUCONAZOLE [Concomitant]
  12. CO-TRIMOXAZOLE [Concomitant]
     Dosage: 160/800

REACTIONS (2)
  - International normalised ratio increased [Recovered/Resolved]
  - Drug interaction [None]
